FAERS Safety Report 5699833-3 (Version None)
Quarter: 2008Q2

REPORT INFORMATION
  Report Type: 
  Country: None (occurrence: None)
  Receive Date: 20080410
  Receipt Date: 20080331
  Transmission Date: 20081010
  Serious: No
  Sender: FDA-Public Use
  Company Number: US-BOEHRINGER INGELHEIM GMBH, GERMANY-2006-BP-10620BP

PATIENT
  Sex: Female

DRUGS (11)
  1. SPIRIVA [Suspect]
     Indication: CHRONIC OBSTRUCTIVE PULMONARY DISEASE
     Route: 055
     Dates: start: 20040101
  2. SPIRIVA [Suspect]
     Indication: INCREASED UPPER AIRWAY SECRETION
  3. SPIRIVA [Suspect]
     Indication: DYSPNOEA
  4. BENZONATATE [Concomitant]
  5. BAYER [Concomitant]
  6. ZOCOR [Concomitant]
  7. CLOPIDOGREL [Concomitant]
  8. SYNTHROID [Concomitant]
  9. DETROL LA [Concomitant]
  10. ALBUTEROL SULFATE [Concomitant]
     Indication: DYSPNOEA
  11. FORADIL [Concomitant]
     Indication: DYSPNOEA

REACTIONS (2)
  - DRUG INEFFECTIVE [None]
  - SKIN LACERATION [None]
